FAERS Safety Report 8066223-8 (Version None)
Quarter: 2012Q1

REPORT INFORMATION
  Report Type: 
  Country: None (occurrence: None)
  Receive Date: 20120117
  Receipt Date: 20120109
  Transmission Date: 20120608
  Serious: Yes (Other)
  Sender: FDA-Public Use
  Company Number: 2012GR_BP000209

PATIENT
  Age: 85 Year
  Sex: Male

DRUGS (7)
  1. QUININE SULPHATE (QUININE SULPHATE) [Concomitant]
  2. ASPIRIN [Concomitant]
  3. LANSOPRAZOLE [Concomitant]
  4. ACETAMINOPHEN [Concomitant]
  5. FINASTERIDE [Suspect]
     Indication: PRODUCT USED FOR UNKNOWN INDICATION
     Dosage: 5 MG (5 MG, ONCE DAILY) ORAL
     Route: 048
     Dates: end: 20111201
  6. LISINOPRIL [Concomitant]
  7. BISOPROLOL FUMARATE [Concomitant]

REACTIONS (1)
  - CEREBROVASCULAR ACCIDENT [None]
